FAERS Safety Report 9319601 (Version 1)
Quarter: 2013Q2

REPORT INFORMATION
  Report Type: Spontaneous
  Country: US (occurrence: US)
  Receive Date: 20130530
  Receipt Date: 20130530
  Transmission Date: 20140414
  Serious: No
  Sender: FDA-Public Use
  Company Number: US-GLAXOSMITHKLINE-A1010983A

PATIENT
  Age: 57 Year
  Sex: Female

DRUGS (2)
  1. FLOLAN [Suspect]
     Indication: PRODUCT USED FOR UNKNOWN INDICATION
     Dosage: 43.8NGKM CONTINUOUS
     Route: 042
     Dates: start: 20100604
  2. ADCIRCA [Concomitant]

REACTIONS (3)
  - Infusion site pruritus [Unknown]
  - Nasopharyngitis [Recovering/Resolving]
  - Headache [Unknown]
